FAERS Safety Report 8225221-1 (Version None)
Quarter: 2012Q1

REPORT INFORMATION
  Report Type: 
  Country: None (occurrence: None)
  Receive Date: 20120321
  Receipt Date: 20120313
  Transmission Date: 20120608
  Serious: Yes (Other)
  Sender: FDA-Public Use
  Company Number: US-MERCK-1112USA01243

PATIENT
  Age: 60 Year
  Sex: Female

DRUGS (5)
  1. FOSAMAX [Suspect]
     Route: 048
  2. FOSAMAX [Suspect]
     Indication: OSTEOPOROSIS
     Route: 048
     Dates: start: 20010621, end: 20100301
  3. ALENDRONATE SODIUM [Suspect]
     Route: 065
     Dates: start: 20080612
  4. FOSAMAX [Suspect]
     Route: 048
  5. FOSAMAX [Suspect]
     Indication: OSTEOPENIA
     Route: 048
     Dates: start: 20010621, end: 20100301

REACTIONS (5)
  - BLOOD CHOLESTEROL INCREASED [None]
  - TOOTH DISORDER [None]
  - FEMUR FRACTURE [None]
  - OVERDOSE [None]
  - ALLERGY TO ARTHROPOD BITE [None]
